FAERS Safety Report 8295376-1 (Version None)
Quarter: 2012Q2

REPORT INFORMATION
  Report Type: 
  Country: None (occurrence: None)
  Receive Date: 20120418
  Receipt Date: 20120112
  Transmission Date: 20120825
  Serious: Yes (Hospitalization)
  Sender: FDA-Public Use
  Company Number: SE-ROCHE-1059837

PATIENT
  Sex: Female

DRUGS (7)
  1. LUCENTIS [Suspect]
     Dosage: STRENGTH 10 MG/ML
     Route: 050
     Dates: start: 20110718
  2. LUCENTIS [Suspect]
     Dosage: STRENGTH 10 MG/ML
     Route: 050
     Dates: start: 20110901
  3. BETNOVAT MED CHINOFORM [Concomitant]
  4. DERMOVAT [Concomitant]
  5. LUCENTIS [Suspect]
     Indication: AGE-RELATED MACULAR DEGENERATION
     Dosage: STRENGTH 10 MG/ML
     Route: 050
     Dates: start: 20110519
  6. LUCENTIS [Suspect]
     Dosage: STRENGTH 10 MG/ML
     Route: 050
     Dates: start: 20111101
  7. LOSARTAN POTASSIUM AND HYDROCHLOROTHIAZIDE [Concomitant]
     Route: 065

REACTIONS (2)
  - RETINAL HAEMORRHAGE [None]
  - ENDOPHTHALMITIS [None]
